FAERS Safety Report 6656580-9 (Version None)
Quarter: 2010Q1

REPORT INFORMATION
  Report Type: 
  Country: None (occurrence: None)
  Receive Date: 20100329
  Receipt Date: 20100318
  Transmission Date: 20100710
  Serious: Yes (Other)
  Sender: FDA-Public Use
  Company Number: GB-BAXTER-2010BH007712

PATIENT
  Age: 6 Month
  Sex: Female

DRUGS (4)
  1. DIANEAL [Suspect]
     Indication: PERITONEAL DIALYSIS
     Route: 033
     Dates: start: 20100101, end: 20100101
  2. DIANEAL [Suspect]
     Route: 033
     Dates: start: 20100101, end: 20100101
  3. PHYSIOSOL IN PLASTIC CONTAINER [Suspect]
     Indication: PERITONEAL DIALYSIS
     Route: 033
     Dates: start: 20090101, end: 20090101
  4. PHYSIOSOL IN PLASTIC CONTAINER [Suspect]
     Route: 033
     Dates: start: 20100101, end: 20100101

REACTIONS (5)
  - LIVER FUNCTION TEST ABNORMAL [None]
  - MALNUTRITION [None]
  - MEDICAL DEVICE COMPLICATION [None]
  - METABOLIC DISORDER [None]
  - VIRAL INFECTION [None]
